FAERS Safety Report 20709317 (Version 2)
Quarter: 2022Q2

REPORT INFORMATION
  Report Type: Spontaneous
  Country: IT (occurrence: IT)
  Receive Date: 20220414
  Receipt Date: 20220510
  Transmission Date: 20220721
  Serious: Yes (Other)
  Sender: FDA-Public Use
  Company Number: IT-MYLANLABS-2022M1026495

PATIENT
  Age: 14 Year
  Sex: Male

DRUGS (2)
  1. ISOTRETINOIN [Suspect]
     Active Substance: ISOTRETINOIN
     Indication: Acne
     Dosage: 30 MILLIGRAM, QD (6 MONTHS)
     Route: 048
     Dates: start: 2018
  2. ISOTRETINOIN [Suspect]
     Active Substance: ISOTRETINOIN
     Dosage: 5 MILLIGRAM, QD (3 MONTHS)
     Route: 048
     Dates: start: 2018

REACTIONS (2)
  - Alopecia [Not Recovered/Not Resolved]
  - Growth retardation [Not Recovered/Not Resolved]

NARRATIVE: CASE EVENT DATE: 20180101
